FAERS Safety Report 5941156-9 (Version None)
Quarter: 2008Q4

REPORT INFORMATION
  Report Type: 
  Country: None (occurrence: None)
  Receive Date: 20081104
  Receipt Date: 20081023
  Transmission Date: 20090506
  Serious: Yes (Other)
  Sender: FDA-Public Use
  Company Number: US-PFIZER INC-2008089882

PATIENT
  Sex: Female
  Weight: 70.3 kg

DRUGS (4)
  1. GEODON [Suspect]
     Indication: BIPOLAR DISORDER
     Dates: start: 20070701
  2. LITHIUM CARBONATE [Suspect]
     Dates: end: 20081022
  3. NEURONTIN [Concomitant]
  4. EFFEXOR [Concomitant]

REACTIONS (5)
  - ANXIETY [None]
  - DEPRESSION [None]
  - PANIC ATTACK [None]
  - SUICIDAL IDEATION [None]
  - WITHDRAWAL SYNDROME [None]
